FAERS Safety Report 21658416 (Version 2)
Quarter: 2022Q4

REPORT INFORMATION
  Report Type: Report from Study
  Country: US (occurrence: US)
  Receive Date: 20221129
  Receipt Date: 20221205
  Transmission Date: 20230113
  Serious: No
  Sender: FDA-Public Use
  Company Number: US-ABBVIE-4205600

PATIENT
  Sex: Female

DRUGS (1)
  1. HUMIRA [Suspect]
     Active Substance: ADALIMUMAB
     Indication: Rheumatoid arthritis
     Dosage: CITRATE FREE?40 MG
     Route: 058

REACTIONS (8)
  - Bronchitis [Not Recovered/Not Resolved]
  - Injection site haemorrhage [Unknown]
  - Illness [Unknown]
  - Wrong technique in product usage process [Unknown]
  - Injection site laceration [Not Recovered/Not Resolved]
  - Injection site reaction [Unknown]
  - Incorrect dose administered [Unknown]
  - Joint stiffness [Unknown]

NARRATIVE: CASE EVENT DATE: 20220101
